FAERS Safety Report 9184682 (Version 2)
Quarter: 2013Q3

REPORT INFORMATION
  Report Type: Spontaneous
  Country: JP (occurrence: JP)
  Receive Date: 20130324
  Receipt Date: 20130812
  Transmission Date: 20140515
  Serious: Yes (Death)
  Sender: FDA-Public Use
  Company Number: JP-CUBIST PHARMACEUTICAL, INC.-2013CBST000194

PATIENT
  Age: 53 Year
  Sex: Male
  Weight: 62 kg

DRUGS (13)
  1. CUBICIN [Suspect]
     Indication: SEPSIS
     Dosage: 350 MG, QD
     Route: 041
     Dates: start: 20130308, end: 20130310
  2. CUBICIN [Suspect]
     Indication: OFF LABEL USE
  3. ALBUMINAR                          /01102501/ [Concomitant]
     Indication: PRODUCT USED FOR UNKNOWN INDICATION
     Dosage: 100 ML, QD
     Route: 041
     Dates: start: 20130301, end: 20130307
  4. CATABON [Concomitant]
     Indication: PRODUCT USED FOR UNKNOWN INDICATION
     Dosage: 600 MG, QD
     Route: 041
     Dates: start: 20130301, end: 20130308
  5. VASOLAN                            /00014302/ [Concomitant]
     Indication: PRODUCT USED FOR UNKNOWN INDICATION
     Dosage: 20 MG, QD
     Route: 041
     Dates: start: 20130306, end: 20130306
  6. MORPHINE [Concomitant]
     Indication: PRODUCT USED FOR UNKNOWN INDICATION
     Dosage: 20 MG, QD
     Route: 041
     Dates: start: 20130308, end: 20130309
  7. SAXIZON [Concomitant]
     Indication: PRODUCT USED FOR UNKNOWN INDICATION
     Dosage: 100 MG, BID
     Route: 041
     Dates: start: 20130309, end: 20130309
  8. SERENACE [Concomitant]
     Indication: PRODUCT USED FOR UNKNOWN INDICATION
     Dosage: 5 MG, QD
     Route: 041
     Dates: start: 20130309, end: 20130309
  9. REVLIMID [Concomitant]
     Indication: PRODUCT USED FOR UNKNOWN INDICATION
     Dosage: 2 DF, QD
     Route: 048
     Dates: start: 20130301, end: 20130309
  10. OMEPRAL                            /00661201/ [Concomitant]
     Indication: PRODUCT USED FOR UNKNOWN INDICATION
     Dosage: 1 DF, QD
     Route: 048
     Dates: start: 20130301, end: 20130309
  11. ROZEREM [Concomitant]
     Indication: PRODUCT USED FOR UNKNOWN INDICATION
     Dosage: 1 DF, QD
     Route: 048
     Dates: start: 20130306, end: 20130309
  12. SEROQUEL [Concomitant]
     Indication: PRODUCT USED FOR UNKNOWN INDICATION
     Dosage: 0.5 DF, QD
     Route: 048
     Dates: start: 20130306, end: 20130309
  13. OPSO [Concomitant]
     Indication: PRODUCT USED FOR UNKNOWN INDICATION
     Dosage: 1 DF, QD
     Route: 048
     Dates: start: 20130308, end: 20130309

REACTIONS (1)
  - Plasma cell myeloma [Fatal]
